FAERS Safety Report 21034491 (Version 1)
Quarter: 2022Q3

REPORT INFORMATION
  Report Type: Spontaneous
  Country: CA (occurrence: CA)
  Receive Date: 20220701
  Receipt Date: 20220701
  Transmission Date: 20221027
  Serious: Yes (Hospitalization)
  Sender: FDA-Public Use
  Company Number: CA-TEVA-2022-CA-2049999

PATIENT
  Age: 2 Month
  Sex: Male
  Weight: 3 kg

DRUGS (2)
  1. VALGANCICLOVIR [Suspect]
     Active Substance: VALGANCICLOVIR
     Indication: Congenital cytomegalovirus infection
     Dosage: 80 MILLIGRAM DAILY;
     Route: 048
  2. VITAMIN D [Concomitant]
     Active Substance: VITAMIN D NOS
     Indication: Product used for unknown indication

REACTIONS (3)
  - Anaemia [Recovered/Resolved]
  - Bicytopenia [Recovered/Resolved]
  - Thrombocytopenia [Recovered/Resolved]
